FAERS Safety Report 25935849 (Version 1)
Quarter: 2025Q4

REPORT INFORMATION
  Report Type: Spontaneous
  Country: US (occurrence: US)
  Receive Date: 20251017
  Receipt Date: 20251017
  Transmission Date: 20260117
  Serious: Yes (Life-Threatening)
  Sender: SANOFI AVENTIS
  Company Number: US-COSETTE-CP2025US001030

PATIENT
  Age: 57 Year
  Sex: Male
  Weight: 81 kg

DRUGS (2)
  1. AMBIEN [Suspect]
     Active Substance: ZOLPIDEM TARTRATE
     Indication: Anxiety
     Dosage: UNK
     Route: 065
  2. AMBIEN [Suspect]
     Active Substance: ZOLPIDEM TARTRATE
     Indication: Insomnia

REACTIONS (3)
  - Aggression [Unknown]
  - Speech disorder [Unknown]
  - Abnormal behaviour [Unknown]

NARRATIVE: CASE EVENT DATE: 20250809
